FAERS Safety Report 7147231-8 (Version None)
Quarter: 2010Q4

REPORT INFORMATION
  Report Type: 
  Country: None (occurrence: None)
  Receive Date: 20101209
  Receipt Date: 20090114
  Transmission Date: 20110411
  Serious: Yes (Death, Hospitalization)
  Sender: FDA-Public Use
  Company Number: US-ACTELION-A-US2008-22038

PATIENT

DRUGS (4)
  1. ILOPROST INHALATION SOLUTION UNKNOWN US [Suspect]
     Indication: PULMONARY ARTERIAL HYPERTENSION
     Route: 055
     Dates: start: 20080716, end: 20090113
  2. TRACLEER [Concomitant]
     Indication: PULMONARY ARTERIAL HYPERTENSION
     Route: 048
     Dates: start: 20070101
  3. REVATIO [Concomitant]
  4. REMODULIN [Concomitant]

REACTIONS (3)
  - BLOOD TEST ABNORMAL [None]
  - DEATH [None]
  - DYSPNOEA [None]
